FAERS Safety Report 4965191-2 (Version None)
Quarter: 2006Q1

REPORT INFORMATION
  Report Type: 
  Country: None (occurrence: None)
  Receive Date: 20060207
  Receipt Date: 20050610
  Transmission Date: 20060701
  Serious: Yes (Life-Threatening, Hospitalization)
  Sender: FDA-Public Use
  Company Number: 243545

PATIENT
  Age: 77 Year
  Sex: Female

DRUGS (2)
  1. NOVOLOG(INSULIN ASPART) SOLUTION FOR REJECTION, 100U/ML [Suspect]
     Indication: INSULIN-REQUIRING TYPE II DIABETES MELLITUS
     Dosage: SLIDING SCALE, TID, SUBCUTANEOUS
     Route: 058
  2. AVANDIA [Concomitant]

REACTIONS (1)
  - HYPOGLYCAEMIC COMA [None]
